FAERS Safety Report 12855832 (Version 1)
Quarter: 2016Q4

REPORT INFORMATION
  Report Type: Report from Study
  Country: IT (occurrence: IT)
  Receive Date: 20161018
  Receipt Date: 20161018
  Transmission Date: 20170207
  Serious: Yes (Other)
  Sender: FDA-Public Use
  Company Number: IT-ROCHE-1841722

PATIENT
  Sex: Female

DRUGS (6)
  1. BEVACIZUMAB [Suspect]
     Active Substance: BEVACIZUMAB
     Dosage: MAINTENANCE TREATMENT: ON DAY 1
     Route: 042
  2. EPIRUBICIN [Suspect]
     Active Substance: EPIRUBICIN
     Indication: OVARIAN EPITHELIAL CANCER RECURRENT
     Dosage: ON DAY 1
     Route: 042
  3. BEVACIZUMAB [Suspect]
     Active Substance: BEVACIZUMAB
     Indication: OVARIAN EPITHELIAL CANCER RECURRENT
     Dosage: INDUCTION TREATMENT: ON DAY 2
     Route: 042
  4. CISPLATIN. [Suspect]
     Active Substance: CISPLATIN
     Indication: OVARIAN EPITHELIAL CANCER RECURRENT
     Route: 042
  5. CYCLOPHOSPHAMIDE. [Suspect]
     Active Substance: CYCLOPHOSPHAMIDE
     Indication: OVARIAN EPITHELIAL CANCER RECURRENT
     Dosage: INDUCTION TREATMENT: ON DAY 1
     Route: 042
  6. CYCLOPHOSPHAMIDE. [Suspect]
     Active Substance: CYCLOPHOSPHAMIDE
     Route: 048

REACTIONS (13)
  - Alopecia [Unknown]
  - Proteinuria [Unknown]
  - Epistaxis [Unknown]
  - Thrombocytopenia [Unknown]
  - Neutropenia [Unknown]
  - Neuropathy peripheral [Unknown]
  - Mucosal inflammation [Unknown]
  - Nausea [Unknown]
  - Hypertension [Unknown]
  - Anaemia [Unknown]
  - Vomiting [Unknown]
  - Cardiotoxicity [Unknown]
  - Nephropathy toxic [Recovering/Resolving]
